FAERS Safety Report 10368853 (Version 1)
Quarter: 2014Q1

REPORT INFORMATION
  Report Type: Spontaneous
  Country: US (occurrence: None)
  Receive Date: 20140306
  Receipt Date: 20140306
  Transmission Date: 20141002
  Serious: Yes (Other)
  Sender: FDA-Public Use
  Company Number: 163-21880-13091594

PATIENT
  Age: 62 Year
  Sex: Female

DRUGS (7)
  1. REVLIMID (LENALIDOMIDE) (CAPSULES) [Suspect]
     Indication: PRODUCT USED FOR UNKNOWN INDICATION
     Route: 048
     Dates: start: 200811
  2. ADULT LOW DOSE ASPIRIN (ACETYLSALIC ACID) [Concomitant]
  3. PEPCID (FAMOTIDINE) [Concomitant]
  4. BENADRYL (DIPHENHYDRAMINE HYDROCHLORIDE) [Concomitant]
  5. NASONEX (MOMETASONE FUROATE) [Concomitant]
  6. R-TANNATE (OTHER ANTIHISTAMINES FOR SYSTEMIC USE) [Concomitant]
  7. SYR / NDL BD (SYRINGE/ NEEDLE) (OTHER NON-THERAPEUTIC AUXILIARY PRODUCTS) [Concomitant]

REACTIONS (1)
  - Pancytopenia [None]
